FAERS Safety Report 6749237-7 (Version None)
Quarter: 2010Q2

REPORT INFORMATION
  Report Type: 
  Country: None (occurrence: None)
  Receive Date: 20100601
  Receipt Date: 20100525
  Transmission Date: 20101027
  Serious: Yes (Other)
  Sender: FDA-Public Use
  Company Number: US-ASTRAZENECA-2010SE23836

PATIENT
  Age: 75 Year
  Sex: Female
  Weight: 52.6 kg

DRUGS (4)
  1. NEXIUM [Suspect]
     Route: 048
     Dates: end: 20090101
  2. NEXIUM [Suspect]
     Route: 048
     Dates: start: 20100509
  3. ZOCOR [Concomitant]
  4. PROPRANOLOL [Concomitant]

REACTIONS (2)
  - ABDOMINAL DISTENSION [None]
  - MYOCARDIAL INFARCTION [None]
